FAERS Safety Report 8111592-3 (Version None)
Quarter: 2012Q1

REPORT INFORMATION
  Report Type: 
  Country: None (occurrence: None)
  Receive Date: 20120202
  Receipt Date: 20120202
  Transmission Date: 20120608
  Serious: Yes (Hospitalization)
  Sender: FDA-Public Use
  Company Number: None

PATIENT
  Age: 64 Year
  Sex: Male
  Weight: 77.973 kg

DRUGS (9)
  1. ZOLEDRONIC ACID-MANNITOL + WATER (ZOMETA) [Concomitant]
  2. ZOFRAN [Concomitant]
  3. DIFLUCAN [Concomitant]
  4. MEGESTROL (MEGACE) LIQUID [Concomitant]
  5. ZOVIRAX [Concomitant]
  6. DIFLUCAN [Concomitant]
  7. SOLN [Concomitant]
  8. ZOLEDRONIC ACID [Suspect]
     Indication: MULTIPLE MYELOMA
     Dosage: 4 MG MONTHLY IV
     Route: 042
     Dates: start: 20111229
  9. OXYCODONE (ROXICODONE) [Concomitant]

REACTIONS (2)
  - PALPITATIONS [None]
  - PULMONARY EMBOLISM [None]
